FAERS Safety Report 8905512 (Version 1)
Quarter: 2012Q4

REPORT INFORMATION
  Report Type: 
  Country: US (occurrence: US)
  Receive Date: 20121113
  Receipt Date: 20121113
  Transmission Date: 20130627
  Serious: No
  Sender: FDA-Public Use
  Company Number: US-ASTRAZENECA-2012SE28312

PATIENT

DRUGS (1)
  1. FASLODEX [Suspect]
     Route: 030

REACTIONS (3)
  - Pain [Unknown]
  - Haematoma [Unknown]
  - Hypoaesthesia [Unknown]
